FAERS Safety Report 11312249 (Version 1)
Quarter: 2015Q3

REPORT INFORMATION
  Report Type: Report from Study
  Country: CO (occurrence: CO)
  Receive Date: 20150727
  Receipt Date: 20150727
  Transmission Date: 20151125
  Serious: Yes (Hospitalization)
  Sender: FDA-Public Use
  Company Number: CO-ASTRAZENECA-2015SE67749

PATIENT
  Age: 212 Day
  Sex: Female
  Weight: 6.8 kg

DRUGS (2)
  1. SALBUTAMOL [Concomitant]
     Active Substance: ALBUTEROL
     Indication: BRONCHOPULMONARY DYSPLASIA
     Dosage: 1 PUFF EVERY 20 MINUTES
     Route: 055
     Dates: start: 20141123
  2. SYNAGIS [Suspect]
     Active Substance: PALIVIZUMAB
     Indication: BRONCHOPULMONARY DYSPLASIA
     Route: 030
     Dates: start: 20141222

REACTIONS (5)
  - Pulmonary congestion [Recovering/Resolving]
  - Dysphonia [Recovering/Resolving]
  - Respiratory syncytial virus test positive [Recovering/Resolving]
  - Respiratory distress [Recovering/Resolving]
  - Bronchiolitis [Recovering/Resolving]

NARRATIVE: CASE EVENT DATE: 20150623
